FAERS Safety Report 4430655-7 (Version None)
Quarter: 2004Q3

REPORT INFORMATION
  Report Type: 
  Country: None (occurrence: None)
  Receive Date: 20040819
  Receipt Date: 20040819
  Transmission Date: 20050211
  Serious: Yes (Hospitalization)
  Sender: FDA-Public Use
  Company Number: None

PATIENT

DRUGS (1)
  1. GATIFLOXACIN [Suspect]
     Dosage: 800 MG

REACTIONS (1)
  - HYPERGLYCAEMIA [None]
